FAERS Safety Report 7534776-1 (Version None)
Quarter: 2011Q2

REPORT INFORMATION
  Report Type: 
  Country: None (occurrence: None)
  Receive Date: 20110609
  Receipt Date: 20080806
  Transmission Date: 20111010
  Serious: Yes (Death)
  Sender: FDA-Public Use
  Company Number: PHFR2007GB01650

PATIENT
  Sex: Male

DRUGS (2)
  1. MIRTAZAPINE [Concomitant]
     Indication: DEPRESSION
     Dosage: 45 MG, UNK
     Route: 048
     Dates: start: 20070405
  2. CLOZAPINE [Suspect]
     Indication: SCHIZOPHRENIA
     Dosage: 350 MG, UNK
     Route: 048
     Dates: start: 20070503

REACTIONS (6)
  - INFLUENZA LIKE ILLNESS [None]
  - CARDIAC HYPERTROPHY [None]
  - MYOCARDIAL INFARCTION [None]
  - WHITE BLOOD CELL COUNT INCREASED [None]
  - CORONARY ARTERY DISEASE [None]
  - NEUTROPHIL COUNT INCREASED [None]
